FAERS Safety Report 11106607 (Version 1)
Quarter: 2015Q2

REPORT INFORMATION
  Report Type: Spontaneous
  Country: AT (occurrence: None)
  Receive Date: 20150508
  Receipt Date: 20150508
  Transmission Date: 20150821
  Serious: Yes (Hospitalization, Disabling, Other)
  Sender: FDA-Public Use
  Company Number: AT-ZYDUS-007773

PATIENT
  Age: 23 Month
  Sex: Male

DRUGS (3)
  1. NIFEDIPINE. [Suspect]
     Active Substance: NIFEDIPINE
     Indication: HYPERTENSION
  2. RAMIPRIL (RAMIPRIL) [Suspect]
     Active Substance: RAMIPRIL
     Indication: HYPERTENSION
  3. ATENOLOL (ATENOLOL) [Suspect]
     Active Substance: ATENOLOL
     Indication: HYPERTENSION

REACTIONS (3)
  - Optic ischaemic neuropathy [None]
  - Blindness [None]
  - Dehydration [None]
